FAERS Safety Report 9411473 (Version 3)
Quarter: 2013Q4

REPORT INFORMATION
  Report Type: Spontaneous
  Country: US (occurrence: US)
  Receive Date: 20130722
  Receipt Date: 20131002
  Transmission Date: 20140711
  Serious: Yes (Hospitalization)
  Sender: FDA-Public Use
  Company Number: US-BRISTOL-MYERS SQUIBB COMPANY-19114685

PATIENT
  Age: 70 Year
  Sex: Male

DRUGS (2)
  1. BYDUREON 2MG SUSPENSION [Suspect]
     Indication: TYPE 2 DIABETES MELLITUS
     Dosage: NO OF DOSES-10
     Route: 058
  2. INSULIN [Concomitant]

REACTIONS (2)
  - Chest pain [Unknown]
  - Blood pressure increased [Unknown]
